FAERS Safety Report 6987179-2 (Version None)
Quarter: 2010Q3

REPORT INFORMATION
  Report Type: 
  Country: None (occurrence: None)
  Receive Date: 20100916
  Receipt Date: 20100908
  Transmission Date: 20110219
  Serious: Yes (Other)
  Sender: FDA-Public Use
  Company Number: DE-PFIZER INC-2010113147

PATIENT
  Age: 40 Year
  Sex: Male

DRUGS (3)
  1. SORTIS [Suspect]
     Indication: TYPE IIA HYPERLIPIDAEMIA
     Dosage: 40 MG, UNK
     Route: 048
     Dates: start: 20100101, end: 20100101
  2. SORTIS [Interacting]
     Dosage: 80 MG, UNK
     Route: 048
     Dates: start: 20100101, end: 20100101
  3. EZETROL [Interacting]
     Dosage: UNK
     Dates: start: 20100101, end: 20100101

REACTIONS (5)
  - ARTHRALGIA [None]
  - ARTHRITIS [None]
  - DRUG INTERACTION [None]
  - MYALGIA [None]
  - RED BLOOD CELL SEDIMENTATION RATE INCREASED [None]
